FAERS Safety Report 11135552 (Version 1)
Quarter: 2015Q2

REPORT INFORMATION
  Report Type: Spontaneous
  Country: US (occurrence: None)
  Receive Date: 20150522
  Receipt Date: 20150522
  Transmission Date: 20150821
  Serious: Yes (Life-Threatening)
  Sender: FDA-Public Use
  Company Number: None

PATIENT
  Age: 42 Year
  Sex: Female

DRUGS (1)
  1. GILENYA [Suspect]
     Active Substance: FINGOLIMOD HYDROCHLORIDE
     Indication: MULTIPLE SCLEROSIS
     Route: 048
     Dates: start: 20141008

REACTIONS (5)
  - Suicidal ideation [None]
  - Visual impairment [None]
  - Fall [None]
  - Homicidal ideation [None]
  - Contusion [None]

NARRATIVE: CASE EVENT DATE: 20150518
